FAERS Safety Report 9363500 (Version 1)
Quarter: 2013Q2

REPORT INFORMATION
  Report Type: Spontaneous
  Country: IT (occurrence: IT)
  Receive Date: 20130624
  Receipt Date: 20130624
  Transmission Date: 20140414
  Serious: Yes (Other)
  Sender: FDA-Public Use
  Company Number: IT-MYLANLABS-2013S1012686

PATIENT
  Age: 50 Year
  Sex: Male

DRUGS (1)
  1. IRINOTECAN [Suspect]
     Indication: COLON NEOPLASM
     Dosage: CYCLIC
     Route: 042
     Dates: start: 20130516, end: 20130605

REACTIONS (2)
  - Presyncope [Recovered/Resolved]
  - Vision blurred [Recovered/Resolved]
